FAERS Safety Report 17224786 (Version 2)
Quarter: 2020Q1

REPORT INFORMATION
  Report Type: Report from Study
  Country: BR (occurrence: BR)
  Receive Date: 20200102
  Receipt Date: 20200123
  Transmission Date: 20200409
  Serious: Yes (Death, Hospitalization, Disabling, Other)
  Sender: FDA-Public Use
  Company Number: PHHY2018BR131581

PATIENT
  Age: 61 Year
  Sex: Male
  Weight: 86 kg

DRUGS (16)
  1. SANDOSTATIN LAR DEPOT [Suspect]
     Active Substance: OCTREOTIDE ACETATE
     Indication: ACROMEGALY
     Dosage: 30 MG, QMO
     Route: 030
     Dates: start: 2004
  2. SANDOSTATIN LAR DEPOT [Suspect]
     Active Substance: OCTREOTIDE ACETATE
     Dosage: 30 MG, QMO
     Route: 030
     Dates: end: 20181108
  3. ENALAPRIL [Concomitant]
     Active Substance: ENALAPRIL
     Indication: RENAL DISORDER PROPHYLAXIS
     Dosage: 5 MG, BY DAY
     Route: 048
     Dates: start: 2016, end: 201911
  4. METFORMIN [Suspect]
     Active Substance: METFORMIN HYDROCHLORIDE
     Dosage: 850 MG
     Route: 065
     Dates: end: 201911
  5. CABERGOLINE. [Concomitant]
     Active Substance: CABERGOLINE
     Dosage: 1 DF (ON TUESDAYS, THURSDAYS, SATURDAYS AND SUNDAYS)
     Route: 048
     Dates: end: 201911
  6. PURAN [Concomitant]
     Active Substance: LEVOTHYROXINE SODIUM
     Indication: THYROID DISORDER
     Dosage: 175 MG, BY DAY
     Route: 048
     Dates: start: 200311, end: 201911
  7. SINVASTATINA [Concomitant]
     Active Substance: SIMVASTATIN
     Indication: BLOOD CHOLESTEROL INCREASED
     Dosage: 20 MG, BY DAY
     Route: 048
     Dates: start: 200311, end: 201911
  8. ACID.ACETYLSALICYLIC [Concomitant]
     Indication: CARDIOVASCULAR EVENT PROPHYLAXIS
     Dosage: 1 DF, BY DAY
     Route: 048
     Dates: start: 200311, end: 201911
  9. SANDOSTATIN LAR DEPOT [Suspect]
     Active Substance: OCTREOTIDE ACETATE
     Dosage: 40 MG, QMO
     Route: 030
     Dates: start: 201801
  10. SANDOSTATIN LAR DEPOT [Suspect]
     Active Substance: OCTREOTIDE ACETATE
     Dosage: UNK
     Route: 030
     Dates: start: 20190613
  11. PREDNISONE. [Concomitant]
     Active Substance: PREDNISONE
     Indication: RENAL DISORDER
     Dosage: 0.5 DF, BY DAY
     Route: 048
     Dates: start: 2016, end: 201911
  12. SANDOSTATIN LAR DEPOT [Suspect]
     Active Substance: OCTREOTIDE ACETATE
     Dosage: 40 MG, UNK
     Route: 030
     Dates: start: 200404
  13. METFORMIN [Suspect]
     Active Substance: METFORMIN HYDROCHLORIDE
     Indication: DIABETES MELLITUS
     Dosage: 500 MG, TID
     Route: 048
     Dates: start: 2003
  14. SANDOSTATIN LAR DEPOT [Suspect]
     Active Substance: OCTREOTIDE ACETATE
     Dosage: 40 MG (TWO AMPOULES OF 20 MG), QMO
     Route: 065
     Dates: start: 201908, end: 201911
  15. CABERGOLINE. [Concomitant]
     Active Substance: CABERGOLINE
     Indication: ACROMEGALY
     Dosage: 2 DF (ON TUESDAYS, THURSDAYS, SATURDAYS AND SUNDAYS)
     Route: 065
     Dates: start: 200311, end: 201911
  16. SINVASTACOR [Concomitant]
     Active Substance: SIMVASTATIN
     Indication: BLOOD CHOLESTEROL
     Route: 065

REACTIONS (16)
  - Septic shock [Fatal]
  - Infection [Fatal]
  - Haemorrhagic stroke [Fatal]
  - Pneumonia [Fatal]
  - Pyrexia [Fatal]
  - Fall [Recovered/Resolved]
  - Mass [Not Recovered/Not Resolved]
  - Cardiac arrest [Fatal]
  - Vein rupture [Fatal]
  - Hypopnoea [Not Recovered/Not Resolved]
  - Speech disorder [Not Recovered/Not Resolved]
  - Subarachnoid haemorrhage [Fatal]
  - Blood pressure decreased [Recovering/Resolving]
  - Pain [Unknown]
  - Headache [Not Recovered/Not Resolved]
  - Aneurysm [Fatal]

NARRATIVE: CASE EVENT DATE: 20180823
